FAERS Safety Report 4581522-X (Version None)
Quarter: 2005Q1

REPORT INFORMATION
  Report Type: 
  Country: None (occurrence: None)
  Receive Date: 20050214
  Receipt Date: 20041109
  Transmission Date: 20050727
  Serious: Yes (Other)
  Sender: FDA-Public Use
  Company Number: US-GLAXOSMITHKLINE-A0533235A

PATIENT
  Age: 17 Year
  Sex: Female
  Weight: 54 kg

DRUGS (5)
  1. LAMICTAL [Suspect]
     Indication: EPILEPSY
     Route: 048
     Dates: start: 20040908, end: 20041001
  2. DEPAKOTE [Concomitant]
     Indication: EPILEPSY
     Dosage: 750MG TWICE PER DAY
     Route: 048
  3. PAXIL [Concomitant]
     Indication: DEPRESSION
     Dosage: 37.5MG IN THE MORNING
     Route: 048
  4. ADDERALL 10 [Concomitant]
     Dosage: 25MG IN THE MORNING
     Route: 048
  5. LOW-OGESTREL [Concomitant]
     Indication: MENSTRUAL DISORDER
     Route: 048

REACTIONS (6)
  - APHTHOUS STOMATITIS [None]
  - BLOOD URINE PRESENT [None]
  - MUCOUS MEMBRANE DISORDER [None]
  - OEDEMA PERIPHERAL [None]
  - RASH ERYTHEMATOUS [None]
  - STEVENS-JOHNSON SYNDROME [None]
